FAERS Safety Report 7519157-9 (Version None)
Quarter: 2011Q2

REPORT INFORMATION
  Report Type: 
  Country: None (occurrence: None)
  Receive Date: 20110602
  Receipt Date: 20110524
  Transmission Date: 20111010
  Serious: Yes (Hospitalization)
  Sender: FDA-Public Use
  Company Number: NL-ROCHE-779132

PATIENT
  Sex: Female

DRUGS (2)
  1. HERCEPTIN [Suspect]
     Indication: BREAST CANCER
     Route: 042
     Dates: start: 20110401, end: 20110401
  2. DOCETAXEL [Concomitant]
     Indication: BREAST CANCER
     Route: 042
     Dates: start: 20110401, end: 20110401

REACTIONS (1)
  - RENAL TUBULAR NECROSIS [None]
